FAERS Safety Report 8201746-X (Version None)
Quarter: 2012Q1

REPORT INFORMATION
  Report Type: 
  Country: None (occurrence: None)
  Receive Date: 20120307
  Receipt Date: 20120227
  Transmission Date: 20120608
  Serious: Yes (Other)
  Sender: FDA-Public Use
  Company Number: AUR-APL-2012-01200

PATIENT
  Age: 47 Year
  Sex: Male

DRUGS (2)
  1. FLUCONAZOLE [Suspect]
     Indication: CRYPTOCOCCOSIS
     Dosage: (1 D)
  2. AMPHOTERICIN B [Suspect]
     Indication: CRYPTOCOCCOSIS

REACTIONS (2)
  - DEVICE RELATED SEPSIS [None]
  - IMMUNE RECONSTITUTION SYNDROME [None]
